FAERS Safety Report 18940387 (Version 2)
Quarter: 2021Q3

REPORT INFORMATION
  Report Type: Spontaneous
  Country: US (occurrence: US)
  Receive Date: 20210225
  Receipt Date: 20210903
  Transmission Date: 20211014
  Serious: No
  Sender: FDA-Public Use
  Company Number: US-PFIZER INC-2016025145

PATIENT
  Age: 55 Year
  Sex: Male
  Weight: 89 kg

DRUGS (1)
  1. SOMAVERT [Suspect]
     Active Substance: PEGVISOMANT
     Dosage: 20 MG (INJECTION), 1X/DAY
     Dates: start: 20081013

REACTIONS (4)
  - Product complaint [Unknown]
  - Poor quality product administered [Unknown]
  - Product container seal issue [Unknown]
  - Injection site bruising [Unknown]
